FAERS Safety Report 7031638-3 (Version None)
Quarter: 2010Q4

REPORT INFORMATION
  Report Type: 
  Country: None (occurrence: None)
  Receive Date: 20101006
  Receipt Date: 20101006
  Transmission Date: 20110411
  Serious: Yes (Other)
  Sender: FDA-Public Use
  Company Number: None

PATIENT
  Age: 40 Year
  Sex: Male

DRUGS (3)
  1. ANDROGEL [Suspect]
     Indication: SPERM COUNT DECREASED
     Dosage: UNKNOWN ONCE A DAY TOPICAL APPLICATION MONTHS
     Route: 061
     Dates: end: 20100201
  2. CYMBALTA [Concomitant]
  3. SERAQUEL [Concomitant]

REACTIONS (2)
  - SPERM COUNT DECREASED [None]
  - TESTICULAR ATROPHY [None]
